FAERS Safety Report 9890128 (Version 1)
Quarter: 2014Q1

REPORT INFORMATION
  Report Type: Spontaneous
  Country: US (occurrence: US)
  Receive Date: 20140212
  Receipt Date: 20140212
  Transmission Date: 20141002
  Serious: No
  Sender: FDA-Public Use
  Company Number: US-BIOGENIDEC-2014BI011449

PATIENT
  Age: 51 Year
  Sex: Female

DRUGS (10)
  1. TECFIDERA [Suspect]
     Indication: MULTIPLE SCLEROSIS
     Route: 048
     Dates: start: 20140119
  2. TECFIDERA [Suspect]
     Indication: MULTIPLE SCLEROSIS
     Route: 048
     Dates: start: 201401
  3. LISINOPRIL [Concomitant]
  4. SIMVASTATIN [Concomitant]
  5. IBUPROFEN [Concomitant]
  6. HYDROCODONE/APAP [Concomitant]
  7. ADIPEX [Concomitant]
  8. CETIRIZINE [Concomitant]
  9. LEXAPRO [Concomitant]
  10. VITAMIN D3 [Concomitant]

REACTIONS (2)
  - Hypoaesthesia [Unknown]
  - Dysarthria [Unknown]
